FAERS Safety Report 9189552 (Version 3)
Quarter: 2013Q2

REPORT INFORMATION
  Report Type: Spontaneous
  Country: US (occurrence: US)
  Receive Date: 20130326
  Receipt Date: 20130619
  Transmission Date: 20140414
  Serious: Yes (Hospitalization)
  Sender: FDA-Public Use
  Company Number: US-ELI_LILLY_AND_COMPANY-US201303005896

PATIENT
  Age: 74 Year
  Sex: Female
  Weight: 59.59 kg

DRUGS (19)
  1. FORTEO [Suspect]
     Indication: OSTEOPOROSIS
     Dosage: 20 UG, QD
     Route: 058
     Dates: start: 201212
  2. ADVAIR DISKUS [Concomitant]
     Dosage: 50 UG, BID
     Route: 055
  3. ASTEPRO [Concomitant]
     Dosage: 2 DF, BID, PRN
     Route: 045
  4. CALCIUM+D3 [Concomitant]
     Dosage: 1 DF, BID
     Route: 048
  5. KLONOPIN [Concomitant]
     Dosage: 0.25 MG, QD
     Route: 048
  6. KLONOPIN [Concomitant]
     Dosage: 0.5 MG, TID
     Route: 048
     Dates: start: 20130417
  7. NEXIUM [Concomitant]
     Dosage: 40 MG, QD
     Route: 048
  8. NORVASC [Concomitant]
     Dosage: 5 MG, QD
     Route: 048
  9. SPIRIVA [Concomitant]
     Dosage: 18 UG, QD
     Route: 055
  10. SYNTHROID [Concomitant]
     Dosage: 50 UG, QD
     Route: 048
  11. VENTOLIN                                /SCH/ [Concomitant]
     Dosage: 90 UG, EVERY 4 HRS, PRN
     Route: 055
  12. VITAMIN D3 [Concomitant]
     Dosage: 5000 IU QD
     Route: 048
  13. ALBUTEROL SULFATE [Concomitant]
     Dosage: 2.5 MG, EVERY 6 HRS
     Route: 055
  14. ASPIRIN [Concomitant]
     Dosage: 81 MG, QD
     Route: 048
  15. CARVEDILOL [Concomitant]
     Dosage: 3.125 MG, BID
     Route: 048
  16. FUROSEMIDE [Concomitant]
     Dosage: 40 MG, QD
     Route: 048
  17. LOSARTAN [Concomitant]
     Dosage: 50 MG, QD
     Route: 048
  18. POTASSIUM CHLORIDE [Concomitant]
     Dosage: 20 MEQ, BID
     Route: 048
  19. PREDNISONE [Concomitant]

REACTIONS (9)
  - Influenza [Recovered/Resolved]
  - Hyperglycaemia [Recovered/Resolved]
  - Chronic obstructive pulmonary disease [Recovered/Resolved]
  - Gastroenteritis [Recovered/Resolved]
  - Hypotension [Unknown]
  - Trigeminal neuralgia [Unknown]
  - Abdominal pain [Unknown]
  - Pneumonia [Unknown]
  - Upper respiratory tract infection [Unknown]
